FAERS Safety Report 13398540 (Version 1)
Quarter: 2017Q2

REPORT INFORMATION
  Report Type: Report from Study
  Country: BR (occurrence: BR)
  Receive Date: 20170403
  Receipt Date: 20170403
  Transmission Date: 20170830
  Serious: Yes (Hospitalization, Other)
  Sender: FDA-Public Use
  Company Number: PHHY2017BR049326

PATIENT
  Age: 88 Year
  Sex: Female

DRUGS (1)
  1. EXELON PATCH [Suspect]
     Active Substance: RIVASTIGMINE
     Indication: PRODUCT USED FOR UNKNOWN INDICATION
     Route: 062

REACTIONS (7)
  - Deafness [Unknown]
  - Osteitis deformans [Unknown]
  - Femur fracture [Unknown]
  - Fall [Unknown]
  - Cardiac disorder [Unknown]
  - Fatigue [Unknown]
  - General physical health deterioration [Unknown]
